FAERS Safety Report 8440577-2 (Version None)
Quarter: 2012Q2

REPORT INFORMATION
  Report Type: 
  Country: None (occurrence: None)
  Receive Date: 20120615
  Receipt Date: 20120605
  Transmission Date: 20120825
  Serious: Yes (Other)
  Sender: FDA-Public Use
  Company Number: NL-BRISTOL-MYERS SQUIBB COMPANY-16687832

PATIENT
  Age: 72 Year
  Sex: Female

DRUGS (1)
  1. MITOTANE [Suspect]
     Indication: ADRENOCORTICAL CARCINOMA
     Dosage: INITIALLY AT 4-8 G PER DAY IN FOUR EQUAL DOSES MAINTENANCE THERAPY:TABLETS.
     Dates: start: 19870101

REACTIONS (3)
  - NEUROTOXICITY [None]
  - BLEEDING TIME PROLONGED [None]
  - GASTROINTESTINAL TOXICITY [None]
